FAERS Safety Report 7732515-2 (Version None)
Quarter: 2011Q3

REPORT INFORMATION
  Report Type: 
  Country: None (occurrence: None)
  Receive Date: 20110906
  Receipt Date: 20110829
  Transmission Date: 20111222
  Serious: Yes (Other)
  Sender: FDA-Public Use
  Company Number: FR-GILEAD-2011-0043387

PATIENT
  Sex: Female

DRUGS (13)
  1. NORVIR [Suspect]
     Indication: HIV INFECTION
     Route: 048
     Dates: start: 20070401
  2. FERROUS SULFATE TAB [Concomitant]
  3. DITROPAN [Concomitant]
  4. VFEND [Suspect]
     Indication: PRODUCT USED FOR UNKNOWN INDICATION
     Route: 048
     Dates: start: 20060621, end: 20110211
  5. TRUVADA [Suspect]
     Indication: HIV INFECTION
     Route: 048
     Dates: start: 20070101
  6. VALACYCLOVIR HYDROCHLORIDE [Concomitant]
     Dates: start: 20060101
  7. PREZISTA [Suspect]
     Indication: HIV INFECTION
     Route: 048
     Dates: start: 20070401
  8. DEPAKENE [Suspect]
     Indication: PRODUCT USED FOR UNKNOWN INDICATION
     Route: 048
     Dates: start: 20060101
  9. SPECIALFOLDINE [Concomitant]
  10. TRILEPTAL [Concomitant]
     Route: 048
     Dates: start: 20061101
  11. CLONAZEPAM [Concomitant]
  12. NEULEPTIL [Concomitant]
  13. ISENTRESS [Suspect]
     Indication: HIV INFECTION
     Route: 048
     Dates: start: 20070401

REACTIONS (1)
  - PSEUDOEPITHELIOMATOUS HYPERPLASIA [None]
